FAERS Safety Report 8760595 (Version 1)
Quarter: 2012Q4

REPORT INFORMATION
  Report Type: Spontaneous
  Country: US (occurrence: None)
  Receive Date: 20120828
  Receipt Date: 20120828
  Transmission Date: 20130627
  Serious: Yes (Life-Threatening, Hospitalization)
  Sender: FDA-Public Use
  Company Number: None

PATIENT
  Age: 7 Day
  Sex: Female

DRUGS (2)
  1. AMPICILLIN [Suspect]
     Route: 042
     Dates: start: 20120808, end: 20120809
  2. AMPICILLIN [Suspect]

REACTIONS (2)
  - Resuscitation [None]
  - Dyspnoea [None]
